FAERS Safety Report 5603337-3 (Version None)
Quarter: 2008Q1

REPORT INFORMATION
  Report Type: 
  Country: None (occurrence: None)
  Receive Date: 20080122
  Receipt Date: 20080103
  Transmission Date: 20080703
  Serious: Yes (Hospitalization)
  Sender: FDA-Public Use
  Company Number: DSA_31324_2008

PATIENT
  Sex: Female

DRUGS (10)
  1. MONO-TILDIEM (MONO-TILDIEM - DILTIAZEM HYDROCHLORIDE) 300 MG (NOT SPEC [Suspect]
     Indication: DRUG USE FOR UNKNOWN INDICATION
     Dosage: (200 MG QD ORAL)
     Route: 048
     Dates: start: 20071107, end: 20071117
  2. FLUDEX /00340101/ (FLUDEX - INDAPAMIDE) 1.5 MG (NOT SPECIFIED) [Suspect]
     Indication: DRUG USE FOR UNKNOWN INDICATION
     Dosage: (1.5 MG QD ORAL)
     Route: 048
     Dates: start: 20071107, end: 20071117
  3. LASILIX RETARD [Concomitant]
  4. AMLOR [Concomitant]
  5. HYPERIUM /00939801/ [Concomitant]
  6. HEMI-DAONIL (UNKNOWN) [Concomitant]
  7. DETENSIEL /000802601/ [Concomitant]
  8. PLAVIX [Concomitant]
  9. CRESTOR /01588601/ (UNKNOWN) [Concomitant]
  10. ZYLORIC /00003301/ (UNKNOWN) [Concomitant]

REACTIONS (2)
  - BACTERIA URINE IDENTIFIED [None]
  - TOXIC SKIN ERUPTION [None]
